FAERS Safety Report 7948438-X (Version None)
Quarter: 2011Q4

REPORT INFORMATION
  Report Type: 
  Country: None (occurrence: None)
  Receive Date: 20111125
  Receipt Date: 20111113
  Transmission Date: 20120403
  Serious: Yes (Life-Threatening, Hospitalization)
  Sender: FDA-Public Use
  Company Number: JP-DEXPHARM-20111725

PATIENT
  Age: 28 Year
  Sex: Male

DRUGS (12)
  1. CHLORHEXIDINE (ARROW GARD+BLUE, ARROW INTERNATIONAL INC., READING PA) [Suspect]
  2. FENTANYL [Concomitant]
  3. MIDAZOLAM [Concomitant]
  4. VERCURONIUM [Concomitant]
  5. ATROPINE [Concomitant]
  6. CEFOZOPRAN HYDROCHLORIDE [Concomitant]
  7. KETAMINE HCL [Concomitant]
  8. SILVER SULFADIAZINE [Concomitant]
  9. THIOPENTAL SODIUM [Concomitant]
  10. BUPRENORPHINE [Concomitant]
  11. HYDROXYZINE [Concomitant]
  12. ISOFLURANE [Concomitant]

REACTIONS (1)
  - ANAPHYLACTIC SHOCK [None]
